FAERS Safety Report 12148001 (Version 3)
Quarter: 2016Q2

REPORT INFORMATION
  Report Type: Spontaneous
  Country: BR (occurrence: BR)
  Receive Date: 20160304
  Receipt Date: 20160524
  Transmission Date: 20160815
  Serious: Yes (Other)
  Sender: FDA-Public Use
  Company Number: BR-PFIZER INC-2016135120

PATIENT
  Age: 51 Year
  Sex: Male

DRUGS (3)
  1. ZIPRASIDONE HCL [Suspect]
     Active Substance: ZIPRASIDONE HYDROCHLORIDE
     Indication: SCHIZOPHRENIA
     Dosage: 160 MG, 2 TABLETS OF 80MG AT NIGHT
     Route: 048
     Dates: start: 201512
  2. RISPERIDONE. [Concomitant]
     Active Substance: RISPERIDONE
     Indication: SCHIZOPHRENIA
     Dosage: UNK
     Dates: start: 2006
  3. GEODON [Suspect]
     Active Substance: ZIPRASIDONE HYDROCHLORIDE\ZIPRASIDONE MESYLATE
     Indication: SCHIZOPHRENIA
     Dosage: 80 MG, 2X/DAY
     Route: 048
     Dates: start: 2006

REACTIONS (9)
  - Drug dependence [Not Recovered/Not Resolved]
  - Drug dose omission [Unknown]
  - Feeling abnormal [Recovered/Resolved]
  - Muscular weakness [Recovered/Resolved]
  - Anxiety [Recovered/Resolved]
  - Somnolence [Unknown]
  - Activities of daily living impaired [Recovered/Resolved]
  - Tachycardia [Recovered/Resolved]
  - Insomnia [Recovered/Resolved]

NARRATIVE: CASE EVENT DATE: 201512
